FAERS Safety Report 24268358 (Version 1)
Quarter: 2024Q3

REPORT INFORMATION
  Report Type: Spontaneous
  Country: US (occurrence: None)
  Receive Date: 20240829
  Receipt Date: 20240829
  Transmission Date: 20241016
  Serious: Yes (Hospitalization)
  Sender: Public
  Company Number: None

PATIENT
  Age: 79 Year
  Sex: Female

DRUGS (1)
  1. OPSUMIT [Suspect]
     Active Substance: MACITENTAN
     Indication: Pulmonary arterial hypertension
     Dosage: FREQUENCY : MONTHLY;?
     Route: 048

REACTIONS (3)
  - Hypotension [None]
  - Chest discomfort [None]
  - Therapy cessation [None]

NARRATIVE: CASE EVENT DATE: 20240825
